FAERS Safety Report 23332327 (Version 8)
Quarter: 2024Q3

REPORT INFORMATION
  Report Type: Report from Study
  Country: US (occurrence: US)
  Receive Date: 20231222
  Receipt Date: 20240905
  Transmission Date: 20241017
  Serious: Yes (Hospitalization, Other)
  Sender: UCB
  Company Number: US-UCBSA-2023013811

PATIENT
  Age: 13 Year
  Sex: Female
  Weight: 41 kg

DRUGS (8)
  1. FINTEPLA [Suspect]
     Active Substance: FENFLURAMINE
     Indication: Lennox-Gastaut syndrome
     Dosage: 3.4 MILLILITER, 2X/DAY (BID)
     Route: 048
     Dates: start: 20221003
  2. FINTEPLA [Suspect]
     Active Substance: FENFLURAMINE
     Dosage: 3.4 MILLILITER, 2X/DAY (BID)
     Route: 048
  3. FINTEPLA [Suspect]
     Active Substance: FENFLURAMINE
     Dosage: 3.4 MILLILITER, 2X/DAY (BID)
     Route: 048
  4. FINTEPLA [Suspect]
     Active Substance: FENFLURAMINE
     Dosage: 3.4 MILLILITER, 2X/DAY (BID) BY J-TUBE
  5. FINTEPLA [Suspect]
     Active Substance: FENFLURAMINE
     Dosage: 3.4 MILLILITER, 2X/DAY (BID)
  6. FINTEPLA [Suspect]
     Active Substance: FENFLURAMINE
     Dosage: 3.4 MILLILITER, 2X/DAY (BID)
  7. FINTEPLA [Suspect]
     Active Substance: FENFLURAMINE
     Dosage: 3.4 MILLILITER, 2X/DAY (BID) BY J-TUBE
  8. UNASYN [Concomitant]
     Active Substance: AMPICILLIN SODIUM\SULBACTAM SODIUM
     Indication: Pneumonia
     Dosage: 1.5 GRAM
     Dates: start: 20240425, end: 20240505

REACTIONS (10)
  - Respiratory disorder [Recovered/Resolved]
  - Hospitalisation [Recovered/Resolved]
  - Seizure [Unknown]
  - Pneumonia aspiration [Unknown]
  - Urinary tract infection [Not Recovered/Not Resolved]
  - Pancreatitis [Not Recovered/Not Resolved]
  - Pneumonia [Not Recovered/Not Resolved]
  - Scoliosis [Not Recovered/Not Resolved]
  - Respiratory tract infection viral [Unknown]
  - Drug ineffective [Unknown]

NARRATIVE: CASE EVENT DATE: 20231103
